FAERS Safety Report 19766934 (Version 1)
Quarter: 2021Q3

REPORT INFORMATION
  Report Type: Report from Study
  Country: FR (occurrence: FR)
  Receive Date: 20210830
  Receipt Date: 20210830
  Transmission Date: 20211014
  Serious: Yes (Death, Other)
  Sender: FDA-Public Use
  Company Number: FR-VIIV HEALTHCARE LIMITED-FR2021GSK180262

PATIENT

DRUGS (5)
  1. ZIDOVUDINE. [Suspect]
     Active Substance: ZIDOVUDINE
     Indication: ADULT T-CELL LYMPHOMA/LEUKAEMIA
     Dosage: 300 MG, TID (HIGH DOSE)
  2. VALACICLOVIR [Concomitant]
     Active Substance: VALACYCLOVIR HYDROCHLORIDE
     Indication: ANTIBIOTIC PROPHYLAXIS
     Dosage: UNK (500?1000 MG) EVERY DAY
  3. INTERFERON ALFA?N1. [Suspect]
     Active Substance: INTERFERON ALFA-N1
     Indication: ADULT T-CELL LYMPHOMA/LEUKAEMIA
     Dosage: UNK (5?6 MILLION IU/M^2/DAY)
  4. TRIMETHOPRIM + SULFAMETHOXAZOL [Concomitant]
     Active Substance: SULFAMERAZINE SODIUM\TRIMETHOPRIM
     Indication: ANTIBIOTIC PROPHYLAXIS
     Dosage: UNK (160?800 MG THREE TIMES PER WEEK)
  5. IVERMECTIN. [Concomitant]
     Active Substance: IVERMECTIN
     Indication: ANTIBIOTIC PROPHYLAXIS
     Dosage: UNK (200 UG/KG)

REACTIONS (6)
  - Off label use [Unknown]
  - Product use in unapproved indication [Unknown]
  - Neutropenia [Unknown]
  - Candida infection [Unknown]
  - Septic shock [Fatal]
  - Overdose [Unknown]
